FAERS Safety Report 8032326-7 (Version None)
Quarter: 2011Q4

REPORT INFORMATION
  Report Type: 
  Country: None (occurrence: None)
  Receive Date: 20111201
  Receipt Date: 20111025
  Transmission Date: 20120403
  Serious: Yes (Other)
  Sender: FDA-Public Use
  Company Number: 201108054

PATIENT
  Age: 63 Year
  Sex: Female
  Weight: 77.1115 kg

DRUGS (15)
  1. MULTIVITAMINS (ERGOCALCIFEROL) [Concomitant]
  2. EPIPEN [Concomitant]
  3. FLAXSEED OIL (LINUM USITATISSIMDM SEED OIL) [Concomitant]
  4. CALCIUM CARBONATE [Concomitant]
  5. HYDROCODONE BITARTRATE [Concomitant]
  6. XIAFLEX [Suspect]
     Indication: DUPUYTREN'S CONTRACTURE
     Dosage: 0.58 MG, 1 IN 1 D, INTRALESIONAL
     Route: 026
     Dates: start: 20110822, end: 20110822
  7. XIAFLEX [Suspect]
     Indication: DUPUYTREN'S CONTRACTURE
     Dosage: 0.58 MG, 1 IN 1 D, INTRALESIONAL
     Route: 026
     Dates: start: 20101011, end: 20101011
  8. XIAFLEX [Suspect]
     Indication: DUPUYTREN'S CONTRACTURE
     Dosage: 0.58 MG, 1 IN 1 D, INTRALESIONAL
     Route: 026
     Dates: start: 20101213, end: 20101213
  9. XIAFLEX [Suspect]
     Indication: DUPUYTREN'S CONTRACTURE
     Dosage: 0.58 MG, 1 IN 1 D, INTRALESIONAL
     Route: 026
     Dates: start: 20110124, end: 20110124
  10. XIAFLEX [Suspect]
     Indication: DUPUYTREN'S CONTRACTURE
     Dosage: 0.58 MG, 1 IN 1 D, INTRALESIONAL
     Route: 026
     Dates: start: 20101115, end: 20101115
  11. XIAFLEX [Suspect]
     Indication: DUPUYTREN'S CONTRACTURE
     Dosage: 0.58 MG, 1 IN 1 D, INTRALESIONAL
     Route: 026
     Dates: start: 20110228, end: 20110228
  12. OMEPRAZOLE [Concomitant]
  13. PAXIL [Concomitant]
  14. ASPIRIN [Concomitant]
  15. ATENALOL (ATENALOL) [Concomitant]

REACTIONS (3)
  - HYPERSENSITIVITY [None]
  - CONTUSION [None]
  - OEDEMA PERIPHERAL [None]
